FAERS Safety Report 4593812-5 (Version None)
Quarter: 2005Q1

REPORT INFORMATION
  Report Type: 
  Country: None (occurrence: None)
  Receive Date: 20050301
  Receipt Date: 20040922
  Transmission Date: 20050727
  Serious: Yes (Hospitalization)
  Sender: FDA-Public Use
  Company Number: 200413556FR

PATIENT
  Age: 69 Year
  Sex: Female
  Weight: 71 kg

DRUGS (10)
  1. ARAVA [Suspect]
     Indication: RHEUMATOID ARTHRITIS
     Route: 048
     Dates: start: 20040326, end: 20040601
  2. CORTANCYL [Concomitant]
     Indication: RHEUMATOID ARTHRITIS
     Dosage: DOSE: 12-0-0
     Route: 048
     Dates: start: 20040405
  3. LASILIX [Concomitant]
     Route: 048
     Dates: start: 20040701, end: 20040101
  4. HAVLANE [Concomitant]
     Route: 048
  5. KREDEX [Concomitant]
     Route: 048
  6. RENITEC [Concomitant]
     Route: 048
  7. KARDEGIC [Concomitant]
     Route: 048
  8. DAFLON [Concomitant]
     Route: 048
  9. FOSAMAX [Concomitant]
     Route: 048
  10. LEXOMIL [Concomitant]
     Route: 048

REACTIONS (7)
  - ASTHENIA [None]
  - CANDIDIASIS [None]
  - DIARRHOEA [None]
  - FLATULENCE [None]
  - INTERSTITIAL LUNG DISEASE [None]
  - LYMPHADENOPATHY [None]
  - RENAL FAILURE ACUTE [None]
